FAERS Safety Report 15776340 (Version 1)
Quarter: 2018Q4

REPORT INFORMATION
  Report Type: Spontaneous
  Country: US (occurrence: US)
  Receive Date: 20181228
  Receipt Date: 20181228
  Transmission Date: 20190205
  Serious: Yes (Death)
  Sender: FDA-Public Use
  Company Number: None

PATIENT
  Age: 52 Year
  Sex: Male

DRUGS (22)
  1. DILAUDID/AMOX/K CLAV [Concomitant]
  2. POLYETH GLYC POW/LEVOFLOXACIN [Concomitant]
  3. HYDROCOD/IBU [Concomitant]
  4. BACLOFEN. [Concomitant]
     Active Substance: BACLOFEN
  5. FENTANYL/VENTOLIN HFA [Concomitant]
  6. DEXAMETHASON [Concomitant]
     Active Substance: DEXAMETHASONE
  7. ESCITALOPRAM [Concomitant]
     Active Substance: ESCITALOPRAM OXALATE
  8. MORPHINE SULF [Concomitant]
     Active Substance: MORPHINE SULFATE
  9. XIGDUO XR [Concomitant]
     Active Substance: DAPAGLIFLOZIN PROPANEDIOL\METFORMIN HYDROCHLORIDE
  10. OXYCODONE/TELMISARTAN [Concomitant]
  11. BISACODYL/SYNTHROID [Concomitant]
  12. PROMETHAZINE/AZITHROMYCIN [Concomitant]
  13. VITAMIN D3 [Concomitant]
     Active Substance: CHOLECALCIFEROL
  14. TAFINLAR [Suspect]
     Active Substance: DABRAFENIB MESYLATE
     Indication: MALIGNANT MELANOMA
     Route: 048
     Dates: start: 20180831
  15. MECLIZINE/BISACODYL [Concomitant]
  16. GABAPENTIN. [Concomitant]
     Active Substance: GABAPENTIN
  17. HYDROMORPHON [Concomitant]
     Active Substance: HYDROMORPHONE
  18. ONDANSETRON/MEKINST [Concomitant]
  19. ROSUVASTATIN. [Concomitant]
     Active Substance: ROSUVASTATIN
  20. PIOGLITAZONE. [Concomitant]
     Active Substance: PIOGLITAZONE
  21. LORAZEPAM/DICLOFENAC [Concomitant]
  22. OMEPRAZOLE. [Concomitant]
     Active Substance: OMEPRAZOLE

REACTIONS (1)
  - Death [None]

NARRATIVE: CASE EVENT DATE: 20181226
